FAERS Safety Report 8775203 (Version 2)
Quarter: 2012Q4

REPORT INFORMATION
  Report Type: 
  Country: IL (occurrence: IL)
  Receive Date: 20120910
  Receipt Date: 20120924
  Transmission Date: 20130627
  Serious: Yes (Other)
  Sender: FDA-Public Use
  Company Number: IL-PFIZER INC-2012221541

PATIENT
  Sex: Female

DRUGS (2)
  1. LIPITOR [Suspect]
     Dosage: UNK
  2. ATORVASTATIN [Suspect]
     Dosage: UNK

REACTIONS (4)
  - Transplant rejection [Unknown]
  - Muscle spasms [Unknown]
  - Myalgia [Unknown]
  - Bone pain [Unknown]
